FAERS Safety Report 21259529 (Version 1)
Quarter: 2022Q3

REPORT INFORMATION
  Report Type: Report from Study
  Country: US (occurrence: US)
  Receive Date: 20220826
  Receipt Date: 20220826
  Transmission Date: 20221026
  Serious: Yes (Hospitalization)
  Sender: FDA-Public Use
  Company Number: US-ABBVIE-22K-163-4517198-00

PATIENT
  Age: 51 Year
  Sex: Female

DRUGS (1)
  1. RINVOQ [Suspect]
     Active Substance: UPADACITINIB
     Indication: Psoriatic arthropathy
     Route: 048

REACTIONS (2)
  - Knee operation [Recovering/Resolving]
  - Post procedural complication [Unknown]

NARRATIVE: CASE EVENT DATE: 20220801
